FAERS Safety Report 6653557-4 (Version None)
Quarter: 2010Q1

REPORT INFORMATION
  Report Type: 
  Country: None (occurrence: None)
  Receive Date: 20100326
  Receipt Date: 20100315
  Transmission Date: 20100710
  Serious: Yes (Hospitalization)
  Sender: FDA-Public Use
  Company Number: US-ELI_LILLY_AND_COMPANY-US200809004521

PATIENT
  Sex: Female

DRUGS (4)
  1. BYETTA [Suspect]
     Indication: TYPE 2 DIABETES MELLITUS
     Dosage: 5 UG, 2/D
     Route: 058
     Dates: start: 20060101
  2. BYETTA [Suspect]
     Dosage: 10 UG, 2/D
     Route: 058
     Dates: end: 20090801
  3. BYETTA [Suspect]
     Dosage: 5 UG, 2/D
     Route: 058
     Dates: start: 20090101
  4. BYETTA [Suspect]
     Dosage: 10 UG, 2/D
     Route: 058

REACTIONS (6)
  - ALTERED STATE OF CONSCIOUSNESS [None]
  - BENIGN OVARIAN TUMOUR [None]
  - MALAISE [None]
  - MEMORY IMPAIRMENT [None]
  - NAUSEA [None]
  - VOMITING [None]
